FAERS Safety Report 10445505 (Version 4)
Quarter: 2015Q4

REPORT INFORMATION
  Report Type: Spontaneous
  Country: BR (occurrence: BR)
  Receive Date: 20140910
  Receipt Date: 20151028
  Transmission Date: 20160304
  Serious: Yes (Death, Hospitalization, Other)
  Sender: FDA-Public Use
  Company Number: BR-PFIZER INC-2014146168

PATIENT
  Age: 71 Year
  Sex: Male
  Weight: 68 kg

DRUGS (2)
  1. SUTENT [Suspect]
     Active Substance: SUNITINIB MALATE
     Indication: METASTATIC RENAL CELL CARCINOMA
     Dosage: 50 MG, CYCLIC 4X2
     Route: 048
     Dates: start: 20130419, end: 20140517
  2. SUTENT [Suspect]
     Active Substance: SUNITINIB MALATE
     Dosage: UNK
     Dates: start: 201406

REACTIONS (12)
  - Disease progression [Fatal]
  - Hypotension [Recovered/Resolved]
  - Tumour haemorrhage [Unknown]
  - Speech disorder [Unknown]
  - Feeling abnormal [Unknown]
  - Haemorrhage [Unknown]
  - Chest discomfort [Unknown]
  - Multi-organ failure [Fatal]
  - Metastatic renal cell carcinoma [Fatal]
  - Hypertensive crisis [Recovering/Resolving]
  - Eating disorder [Unknown]
  - Epistaxis [Unknown]
